FAERS Safety Report 9491712 (Version 2)
Quarter: 2013Q3

REPORT INFORMATION
  Report Type: Not Available
  Country: US (occurrence: US)
  Receive Date: 20130919
  Receipt Date: 20130919
  Transmission Date: 20140515
  Serious: No
  Sender: FDA-Public Use
  Company Number: US-LUNDBECK-DKLU1081353

PATIENT
  Sex: Male

DRUGS (3)
  1. SABRIL (TABLET) [Suspect]
     Indication: CONVULSION
     Route: 048
     Dates: start: 20100818
  2. SABRIL (TABLET) [Suspect]
     Indication: INFANTILE SPASMS
     Route: 048
     Dates: start: 20100818
  3. DILANTIN [Concomitant]
     Indication: CONVULSION

REACTIONS (2)
  - Seasonal allergy [Unknown]
  - Nasopharyngitis [Unknown]
